FAERS Safety Report 6616595-3 (Version None)
Quarter: 2010Q1

REPORT INFORMATION
  Report Type: 
  Country: None (occurrence: None)
  Receive Date: 20100305
  Receipt Date: 20100224
  Transmission Date: 20100710
  Serious: Yes (Disabling, Other)
  Sender: FDA-Public Use
  Company Number: PHHY2010DE03132

PATIENT
  Sex: Male
  Weight: 86 kg

DRUGS (2)
  1. PROVAS COMP [Suspect]
     Dosage: 1 DF, QD
     Route: 048
  2. ASPIRIN [Concomitant]
     Dosage: 100 MG, QD
     Route: 048

REACTIONS (3)
  - RETINAL OEDEMA [None]
  - STENT PLACEMENT [None]
  - VISUAL IMPAIRMENT [None]
